FAERS Safety Report 5974137-X (Version None)
Quarter: 2008Q4

REPORT INFORMATION
  Report Type: 
  Country: None (occurrence: None)
  Receive Date: 20081201
  Receipt Date: 20081126
  Transmission Date: 20090506
  Serious: Yes (Other)
  Sender: FDA-Public Use
  Company Number: US-PFIZER INC-2008074469

PATIENT

DRUGS (4)
  1. CELEBREX [Suspect]
     Route: 048
  2. CIPROFLOXACIN [Concomitant]
  3. VICODIN [Concomitant]
  4. ASPIRIN [Concomitant]

REACTIONS (4)
  - HAEMARTHROSIS [None]
  - POST PROCEDURAL HAEMORRHAGE [None]
  - SWELLING [None]
  - WOUND DRAINAGE [None]
